FAERS Safety Report 6164913-5 (Version None)
Quarter: 2009Q2

REPORT INFORMATION
  Report Type: 
  Country: None (occurrence: None)
  Receive Date: 20090423
  Receipt Date: 20090417
  Transmission Date: 20091009
  Serious: Yes (Hospitalization, Other)
  Sender: FDA-Public Use
  Company Number: US-BAYER-200829684NA

PATIENT
  Age: 35 Year
  Sex: Female
  Weight: 78 kg

DRUGS (2)
  1. MIRENA [Suspect]
     Indication: CONTRACEPTION
     Dosage: DAILY CONTINUOUS
     Route: 015
     Dates: start: 20071003, end: 20080702
  2. DESOGEN [Concomitant]
     Indication: CONTRACEPTION
     Dates: start: 20080724

REACTIONS (7)
  - AMENORRHOEA [None]
  - BACK INJURY [None]
  - BACK PAIN [None]
  - HAEMORRHOIDS [None]
  - IUCD COMPLICATION [None]
  - IUD MIGRATION [None]
  - PROCEDURAL PAIN [None]
